FAERS Safety Report 25363019 (Version 1)
Quarter: 2025Q2

REPORT INFORMATION
  Report Type: Spontaneous
  Country: IT (occurrence: IT)
  Receive Date: 20250527
  Receipt Date: 20250527
  Transmission Date: 20250716
  Serious: Yes (Death, Other)
  Sender: BRACCO
  Company Number: None

PATIENT
  Age: 51 Year
  Sex: Female

DRUGS (1)
  1. IOPAMIRO [Suspect]
     Active Substance: IOPAMIDOL
     Dates: start: 20250506, end: 20250506

REACTIONS (2)
  - Dyspnoea [Fatal]
  - Death [Fatal]

NARRATIVE: CASE EVENT DATE: 20250506
